FAERS Safety Report 9629363 (Version 1)
Quarter: 2013Q4

REPORT INFORMATION
  Report Type: Spontaneous
  Country: US (occurrence: US)
  Receive Date: 20131017
  Receipt Date: 20131017
  Transmission Date: 20140711
  Serious: No
  Sender: FDA-Public Use
  Company Number: US-ASTRAZENECA-2013SE59084

PATIENT
  Age: 65 Year
  Sex: Male
  Weight: 79.4 kg

DRUGS (8)
  1. CRESTOR [Suspect]
     Indication: BLOOD CHOLESTEROL ABNORMAL
     Route: 048
     Dates: start: 2008
  2. CRESTOR [Suspect]
     Indication: LOW DENSITY LIPOPROTEIN ABNORMAL
     Route: 048
     Dates: start: 2008
  3. CRESTOR [Suspect]
     Indication: BLOOD CHOLESTEROL ABNORMAL
     Route: 048
  4. CRESTOR [Suspect]
     Indication: LOW DENSITY LIPOPROTEIN ABNORMAL
     Route: 048
  5. CRESTOR [Suspect]
     Indication: BLOOD CHOLESTEROL ABNORMAL
     Route: 048
  6. CRESTOR [Suspect]
     Indication: LOW DENSITY LIPOPROTEIN ABNORMAL
     Route: 048
  7. CRESTOR [Suspect]
     Indication: BLOOD CHOLESTEROL ABNORMAL
     Route: 048
     Dates: start: 20130425
  8. CRESTOR [Suspect]
     Indication: LOW DENSITY LIPOPROTEIN ABNORMAL
     Route: 048
     Dates: start: 20130425

REACTIONS (3)
  - Exercise tolerance decreased [Not Recovered/Not Resolved]
  - Pain [Not Recovered/Not Resolved]
  - Myalgia [Recovered/Resolved]
